FAERS Safety Report 4359429-2 (Version None)
Quarter: 2004Q2

REPORT INFORMATION
  Report Type: 
  Country: None (occurrence: None)
  Receive Date: 20040512
  Receipt Date: 20040422
  Transmission Date: 20050107
  Serious: Yes (Other)
  Sender: FDA-Public Use
  Company Number: USA040362065

PATIENT
  Age: 69 Year
  Sex: Female
  Weight: 86 kg

DRUGS (3)
  1. HUMULIN R [Suspect]
     Dosage: 20 U/3 DAY
     Dates: start: 19940101
  2. HUMULIN N [Suspect]
     Dosage: 50 U/1 IN THE EVENINT
     Dates: start: 19940101
  3. ACTOS [Concomitant]

REACTIONS (14)
  - ARTERIAL OCCLUSIVE DISEASE [None]
  - BLOOD GLUCOSE FLUCTUATION [None]
  - CATARACT [None]
  - DIFFICULTY IN WALKING [None]
  - DYSSTASIA [None]
  - EYE HAEMORRHAGE [None]
  - FAECAL INCONTINENCE [None]
  - FALL [None]
  - HALLUCINATION [None]
  - HYPERTENSION [None]
  - LIMB INJURY [None]
  - PAIN IN EXTREMITY [None]
  - PHARMACEUTICAL PRODUCT COMPLAINT [None]
  - SKIN DISCOLOURATION [None]
